FAERS Safety Report 9406454 (Version 3)
Quarter: 2013Q3

REPORT INFORMATION
  Report Type: Spontaneous
  Country: JP (occurrence: JP)
  Receive Date: 20130718
  Receipt Date: 20130816
  Transmission Date: 20140515
  Serious: Yes (Hospitalization)
  Sender: FDA-Public Use
  Company Number: JP-ASTRAZENECA-2013SE52004

PATIENT
  Age: 80 Year
  Sex: Male

DRUGS (3)
  1. NEXIUM [Suspect]
     Indication: GASTROOESOPHAGEAL REFLUX DISEASE
     Route: 048
     Dates: end: 20130528
  2. MUCOSTA [Suspect]
     Indication: GASTRITIS
     Route: 065
     Dates: end: 20130528
  3. RIKKUNSHITO [Suspect]
     Indication: GASTRITIS
     Route: 048
     Dates: end: 20130528

REACTIONS (1)
  - Generalised erythema [Recovering/Resolving]
